FAERS Safety Report 17150844 (Version 5)
Quarter: 2020Q2

REPORT INFORMATION
  Report Type: Spontaneous
  Country: US (occurrence: US)
  Receive Date: 20191213
  Receipt Date: 20200520
  Transmission Date: 20200713
  Serious: Yes (Other)
  Sender: FDA-Public Use
  Company Number: US-JNJFOC-20191208174

PATIENT
  Age: 70 Year
  Sex: Male
  Weight: 92.62 kg

DRUGS (4)
  1. RISPERDAL [Suspect]
     Active Substance: RISPERIDONE
     Indication: GENERALISED ANXIETY DISORDER
     Dosage: BEGAN 17 YEARS AGO
     Route: 048
     Dates: end: 201911
  2. LIPITOR [Concomitant]
     Active Substance: ATORVASTATIN CALCIUM
     Indication: BLOOD CHOLESTEROL ABNORMAL
  3. RISPERDAL [Suspect]
     Active Substance: RISPERIDONE
     Indication: GENERALISED ANXIETY DISORDER
     Route: 048
     Dates: start: 20191121
  4. RISPERIDONE. [Suspect]
     Active Substance: RISPERIDONE
     Indication: PRODUCT USED FOR UNKNOWN INDICATION
     Dosage: GENERIC RISPERIDONE
     Route: 065

REACTIONS (8)
  - Feeling abnormal [Recovered/Resolved]
  - Therapeutic product effect decreased [Unknown]
  - Delusion [Unknown]
  - Hallucination [Recovered/Resolved]
  - Dyspnoea [Recovered/Resolved]
  - Product quality issue [Unknown]
  - Agitation [Unknown]
  - Mental disorder [Unknown]

NARRATIVE: CASE EVENT DATE: 20191202
